FAERS Safety Report 24455663 (Version 2)
Quarter: 2024Q4

REPORT INFORMATION
  Report Type: Spontaneous
  Country: US (occurrence: US)
  Receive Date: 20241017
  Receipt Date: 20241018
  Transmission Date: 20250114
  Serious: No
  Sender: ROCHE
  Company Number: US-ROCHE-3501261

PATIENT
  Age: 16 Year
  Sex: Female

DRUGS (17)
  1. RITUXAN [Suspect]
     Active Substance: RITUXIMAB
     Indication: Epstein-Barr virus infection reactivation
     Route: 065
  2. CYCLOSPORINE [Concomitant]
     Active Substance: CYCLOSPORINE
     Indication: Haemophagocytic lymphohistiocytosis
  3. CANAKINUMAB [Concomitant]
     Active Substance: CANAKINUMAB
     Indication: Haemophagocytic lymphohistiocytosis
     Dosage: DOSE INCREASED TO 300 MG EVERY 4 WEEKS AND THEN TO 500 MG EVERY 4 WEEKS DUE TO SMOLDERING MAS
  4. LEFLUNOMIDE [Concomitant]
     Active Substance: LEFLUNOMIDE
  5. HYDROXYCHLOROQUINE [Concomitant]
     Active Substance: HYDROXYCHLOROQUINE
  6. ANAKINRA [Concomitant]
     Active Substance: ANAKINRA
  7. DEXAMETHASONE [Concomitant]
     Active Substance: DEXAMETHASONE
  8. PREDNISONE [Concomitant]
     Active Substance: PREDNISONE
  9. ETANERCEPT [Concomitant]
     Active Substance: ETANERCEPT
  10. ADALIMUMAB [Concomitant]
     Active Substance: ADALIMUMAB
     Indication: Arthritis
  11. TOCILIZUMAB [Concomitant]
     Active Substance: TOCILIZUMAB
     Indication: Arthritis
     Route: 065
  12. SOLU-MEDROL [Concomitant]
     Active Substance: METHYLPREDNISOLONE SODIUM SUCCINATE
     Route: 042
  13. ALEMTUZUMAB [Concomitant]
     Active Substance: ALEMTUZUMAB
     Dosage: FOR 3 DAYS (DAYS 14 TO 12)
     Route: 058
  14. FLUDARABINE [Concomitant]
     Active Substance: FLUDARABINE PHOSPHATE
     Dosage: FOR 5 DAYS (DAYS 8 TO 4)
  15. MELPHALAN [Concomitant]
     Active Substance: MELPHALAN
     Dosage: FOR 2 DOSES (DAYS - 2 AND -1)).
  16. TACROLIMUS [Concomitant]
     Active Substance: TACROLIMUS
     Indication: Prophylaxis against graft versus host disease
  17. METHYLPREDNISOLONE [Concomitant]
     Active Substance: METHYLPREDNISOLONE
     Indication: Prophylaxis against graft versus host disease

REACTIONS (1)
  - B-cell aplasia [Unknown]
